FAERS Safety Report 5611255-X (Version None)
Quarter: 2008Q1

REPORT INFORMATION
  Report Type: 
  Country: None (occurrence: None)
  Receive Date: 20080201
  Receipt Date: 20080123
  Transmission Date: 20080703
  Serious: Yes (Hospitalization)
  Sender: FDA-Public Use
  Company Number: PHRM2008FR00684

PATIENT
  Age: 41 Year
  Sex: Female

DRUGS (1)
  1. AREDIA [Suspect]
     Indication: COMPLEX REGIONAL PAIN SYNDROME
     Route: 042
     Dates: start: 20070801

REACTIONS (6)
  - INTERTRIGO [None]
  - LEUKOCYTOSIS [None]
  - NAIL DISORDER [None]
  - ONYCHOMYCOSIS [None]
  - PSORIASIS [None]
  - RASH ERYTHEMATOUS [None]
